FAERS Safety Report 11231117 (Version 1)
Quarter: 2015Q2

REPORT INFORMATION
  Report Type: Spontaneous
  Country: US (occurrence: None)
  Receive Date: 20150629
  Receipt Date: 20150629
  Transmission Date: 20150821
  Serious: No
  Sender: FDA-Public Use
  Company Number: None

PATIENT
  Age: 32 Year
  Sex: Female
  Weight: 63.5 kg

DRUGS (2)
  1. SKYLA [Suspect]
     Active Substance: LEVONORGESTREL
     Indication: CONTRACEPTION
     Dosage: IUD  INSERTED ONCE  VAGINAL
     Route: 067
     Dates: start: 20150527, end: 20150626
  2. CRESTOR [Concomitant]
     Active Substance: ROSUVASTATIN CALCIUM

REACTIONS (5)
  - Libido decreased [None]
  - Acne [None]
  - Weight increased [None]
  - Breast tenderness [None]
  - Depressed mood [None]

NARRATIVE: CASE EVENT DATE: 20150625
